FAERS Safety Report 8217590-3 (Version None)
Quarter: 2012Q1

REPORT INFORMATION
  Report Type: 
  Country: None (occurrence: None)
  Receive Date: 20120319
  Receipt Date: 20120319
  Transmission Date: 20120608
  Serious: Yes (Other)
  Sender: FDA-Public Use
  Company Number: None

PATIENT
  Age: 58 Year
  Sex: Male
  Weight: 110.67 kg

DRUGS (1)
  1. LUNESTA [Suspect]
     Indication: INSOMNIA
     Dosage: 3 MG AT BEDTIME
     Route: 048
     Dates: start: 20120102, end: 20120312

REACTIONS (2)
  - MIDDLE INSOMNIA [None]
  - SOMNAMBULISM [None]
